FAERS Safety Report 21423477 (Version 1)
Quarter: 2022Q4

REPORT INFORMATION
  Report Type: Spontaneous
  Country: US (occurrence: None)
  Receive Date: 20221007
  Receipt Date: 20221007
  Transmission Date: 20230113
  Serious: Yes (Life-Threatening, Hospitalization)
  Sender: FDA-Public Use
  Company Number: None

PATIENT
  Age: 51 Year
  Sex: Female
  Weight: 113.6 kg

DRUGS (2)
  1. BACTRIM [Suspect]
     Active Substance: SULFAMETHOXAZOLE\TRIMETHOPRIM
     Indication: Upper respiratory tract infection
     Dosage: FREQUENCY : TWICE A DAY;?
     Route: 048
     Dates: start: 20220830, end: 20220915
  2. AUGMENTIN [Concomitant]
     Active Substance: AMOXICILLIN\CLAVULANATE POTASSIUM
     Dates: start: 20220830, end: 20220915

REACTIONS (9)
  - Decreased appetite [None]
  - Malaise [None]
  - Oropharyngeal pain [None]
  - Dysphagia [None]
  - Blister [None]
  - Rash [None]
  - Skin exfoliation [None]
  - Toxicity to various agents [None]
  - Toxic epidermal necrolysis [None]

NARRATIVE: CASE EVENT DATE: 20220918
